FAERS Safety Report 11070509 (Version 1)
Quarter: 2015Q2

REPORT INFORMATION
  Report Type: Spontaneous
  Country: RO (occurrence: RO)
  Receive Date: 20150427
  Receipt Date: 20150427
  Transmission Date: 20150821
  Serious: Yes (Death)
  Sender: FDA-Public Use
  Company Number: RO-ABBVIE-14P-135-1325519-00

PATIENT
  Age: 72 Year
  Sex: Male

DRUGS (4)
  1. RIVIASTIGMIN [Concomitant]
     Indication: DEMENTIA
     Route: 048
  2. DUODOPA [Suspect]
     Active Substance: CARBIDOPA\LEVODOPA
     Indication: PARKINSON^S DISEASE
     Dosage: MD=3 ML; CR=5.2 ML PER HOUR; ED=5 ML.
     Route: 050
     Dates: start: 20091016
  3. CARBAMAZEPINE. [Concomitant]
     Active Substance: CARBAMAZEPINE
     Indication: DEMENTIA
     Dosage: 1/2 TABLET X 2/DAY
     Route: 048
  4. LEPONEX [Concomitant]
     Active Substance: CLOZAPINE
     Indication: DEMENTIA

REACTIONS (1)
  - Cardio-respiratory arrest [Fatal]

NARRATIVE: CASE EVENT DATE: 20141223
